FAERS Safety Report 10498749 (Version 1)
Quarter: 2014Q4

REPORT INFORMATION
  Report Type: Spontaneous
  Country: FR (occurrence: FR)
  Receive Date: 20141006
  Receipt Date: 20141006
  Transmission Date: 20150528
  Serious: Yes (Hospitalization, Other)
  Sender: FDA-Public Use
  Company Number: FR-PFIZER INC-2014269663

PATIENT
  Age: 69 Year
  Sex: Female
  Weight: 77 kg

DRUGS (11)
  1. TEMERIT [Concomitant]
     Active Substance: NEBIVOLOL
     Dosage: 1.25 MG, DAILY
     Route: 048
  2. TAHOR [Suspect]
     Active Substance: ATORVASTATIN CALCIUM
     Dosage: 10 MG, DAILY
     Route: 048
     Dates: end: 20140510
  3. GLUCOPHAGE [Suspect]
     Active Substance: METFORMIN HYDROCHLORIDE
     Dosage: 1000 MG, 3X/DAY
     Route: 048
     Dates: end: 20140510
  4. LERCAN [Concomitant]
     Active Substance: LERCANIDIPINE
     Dosage: 10 MG, 2X/DAY
     Route: 048
  5. LEVOTHYROX [Concomitant]
     Active Substance: LEVOTHYROXINE
     Dosage: 25 UG, DAILY
     Route: 048
  6. NOVONORM [Suspect]
     Active Substance: REPAGLINIDE
     Dosage: 2 MG, DAILY
     Route: 048
     Dates: end: 20140510
  7. VICTOZA [Suspect]
     Active Substance: LIRAGLUTIDE
     Dosage: 1.2 DF, DAILY
     Route: 058
     Dates: end: 20140510
  8. PHYSIOTENS [Suspect]
     Active Substance: MOXONIDINE
     Dosage: 0.4 MG, 1X/DAY
     Route: 048
     Dates: end: 20140510
  9. GLYCEROL\PARAFFIN [Concomitant]
     Active Substance: GLYCERIN\PARAFFIN
     Dosage: 1 DF, 2X/DAY
     Route: 061
     Dates: end: 20140510
  10. COAPROVEL [Suspect]
     Active Substance: HYDROCHLOROTHIAZIDE\IRBESARTAN
     Dosage: 25 MG/300 MG, DAILY
     Route: 048
     Dates: end: 20140510
  11. DIPROSONE [Suspect]
     Active Substance: BETAMETHASONE DIPROPIONATE
     Dosage: UNK
     Route: 061
     Dates: end: 20140510

REACTIONS (3)
  - Pancreatitis [Recovering/Resolving]
  - Hyponatraemia [Unknown]
  - Renal failure [Recovering/Resolving]

NARRATIVE: CASE EVENT DATE: 20140510
